FAERS Safety Report 6616705-8 (Version None)
Quarter: 2010Q1

REPORT INFORMATION
  Report Type: 
  Country: None (occurrence: None)
  Receive Date: 20100305
  Receipt Date: 20100224
  Transmission Date: 20100710
  Serious: Yes (Other)
  Sender: FDA-Public Use
  Company Number: ES-ABBOTT-10P-144-0628246-00

PATIENT
  Age: 42 Year
  Sex: Female

DRUGS (3)
  1. KLACID TABLETS [Suspect]
     Indication: HELICOBACTER INFECTION
     Dosage: DAILY
     Route: 048
     Dates: start: 20081219, end: 20081227
  2. AMOXICILINA [Concomitant]
     Indication: HELICOBACTER INFECTION
     Dosage: 2 GM, DAILY
     Route: 048
     Dates: start: 20081219
  3. OMEPRAZOLE [Concomitant]
     Indication: HELICOBACTER INFECTION
     Dosage: 40 MG, DAILY
     Route: 048
     Dates: start: 20081219

REACTIONS (7)
  - ANXIETY [None]
  - DEAFNESS [None]
  - DRY MOUTH [None]
  - DYSGEUSIA [None]
  - INSOMNIA [None]
  - VASOCONSTRICTION [None]
  - VERTIGO [None]
